FAERS Safety Report 23741081 (Version 1)
Quarter: 2024Q2

REPORT INFORMATION
  Report Type: Spontaneous
  Country: CA (occurrence: CA)
  Receive Date: 20240415
  Receipt Date: 20240415
  Transmission Date: 20240716
  Serious: Yes (Hospitalization)
  Sender: FDA-Public Use
  Company Number: CA-APOTEX-2024AP004435

PATIENT
  Age: 30 Month
  Sex: Female
  Weight: 16 kg

DRUGS (1)
  1. ACETAMINOPHEN [Suspect]
     Active Substance: ACETAMINOPHEN
     Indication: Product used for unknown indication
     Dosage: 418 MILLIGRAM/KILOGRAM
     Route: 048

REACTIONS (1)
  - Overdose [Unknown]
